FAERS Safety Report 16670804 (Version 3)
Quarter: 2019Q4

REPORT INFORMATION
  Report Type: Spontaneous
  Country: US (occurrence: US)
  Receive Date: 20190805
  Receipt Date: 20191007
  Transmission Date: 20200122
  Serious: Yes (Hospitalization, Other)
  Sender: FDA-Public Use
  Company Number: US-AKCEA THERAPEUTICS-2019IS001633

PATIENT

DRUGS (1)
  1. TEGSEDI [Suspect]
     Active Substance: INOTERSEN SODIUM
     Indication: HEREDITARY NEUROPATHIC AMYLOIDOSIS
     Dosage: 284 MG, QW
     Route: 058
     Dates: start: 20190506, end: 20190630

REACTIONS (9)
  - Hydronephrosis [Unknown]
  - Reflux nephropathy [Unknown]
  - Nausea [Unknown]
  - Vomiting [Unknown]
  - Nephrostomy [Unknown]
  - Renal failure [Unknown]
  - Renal disorder [Unknown]
  - Kidney infection [Unknown]
  - Dehydration [Unknown]

NARRATIVE: CASE EVENT DATE: 2019
